FAERS Safety Report 4666718-0 (Version None)
Quarter: 2005Q2

REPORT INFORMATION
  Report Type: 
  Country: None (occurrence: None)
  Receive Date: 20050518
  Receipt Date: 20050512
  Transmission Date: 20051028
  Serious: Yes (Other)
  Sender: FDA-Public Use
  Company Number: 200510759BWH

PATIENT
  Sex: Male

DRUGS (2)
  1. CIPRO [Suspect]
     Indication: ABDOMINAL INFECTION
     Dosage: 500 MG, BID, ORAL
     Route: 048
     Dates: start: 20030609, end: 20030702
  2. LEVAQUIN [Suspect]
     Dosage: 500 MG, BID, ORAL
     Route: 048
     Dates: start: 20030703

REACTIONS (13)
  - ABDOMINAL DISTENSION [None]
  - ABDOMINAL INFECTION [None]
  - BLOOD PRESSURE SYSTOLIC INCREASED [None]
  - CONDITION AGGRAVATED [None]
  - DRUG INEFFECTIVE [None]
  - EPISTAXIS [None]
  - HYPOACUSIS [None]
  - IRRITABLE BOWEL SYNDROME [None]
  - NIGHT SWEATS [None]
  - PAIN [None]
  - POSTOPERATIVE INFECTION [None]
  - STAPHYLOCOCCAL INFECTION [None]
  - SWELLING [None]
